FAERS Safety Report 7530139-3 (Version None)
Quarter: 2011Q2

REPORT INFORMATION
  Report Type: 
  Country: None (occurrence: None)
  Receive Date: 20110606
  Receipt Date: 20110606
  Transmission Date: 20111010
  Serious: Yes (Death)
  Sender: FDA-Public Use
  Company Number: None

PATIENT
  Sex: Male
  Weight: 117.028 kg

DRUGS (1)
  1. MIRTAZAPINE [Suspect]
     Indication: INSOMNIA
     Dosage: 1 BEDTIME
     Dates: start: 20110420

REACTIONS (4)
  - ANGER [None]
  - AGITATION [None]
  - GUN SHOT WOUND [None]
  - COMPLETED SUICIDE [None]
